FAERS Safety Report 13758211 (Version 1)
Quarter: 2017Q3

REPORT INFORMATION
  Report Type: Spontaneous
  Country: US (occurrence: US)
  Receive Date: 20170714
  Receipt Date: 20170714
  Transmission Date: 20171127
  Serious: No
  Sender: FDA-Public Use
  Company Number: None

PATIENT
  Age: 2 Year
  Sex: Female

DRUGS (17)
  1. OMEPRAZOLE. [Concomitant]
     Active Substance: OMEPRAZOLE
  2. SPIRONOLACTONE (ALDACTONE) [Concomitant]
  3. GLYCERIN  CHILD (SANI-SUPP) [Concomitant]
  4. BACITRACIN ZINC. [Concomitant]
     Active Substance: BACITRACIN ZINC
  5. LEVOTHYROXINE (LEVOTHROID/SYNTHROID) [Concomitant]
  6. CHILDREN^S PAIN-FEVER RELIEF [Concomitant]
  7. ROXICODONE [Concomitant]
     Active Substance: OXYCODONE HYDROCHLORIDE
  8. OFLOXACIN (FLOXIN) [Concomitant]
  9. LIDOCAINE-PRILOCAINE (EMLA) [Concomitant]
  10. POLYETHYLENE GLYCOL 3350 (MIRALAX/GLYCOLAX) [Concomitant]
  11. CHILDRENS IBUPROFEN [Concomitant]
     Active Substance: IBUPROFEN
  12. FERROUS SULFATE (IRON ORAL) [Concomitant]
  13. APPEBON WITH IRON SYRUP [Concomitant]
  14. CEELIN PLUS [Concomitant]
  15. TRACLEER [Suspect]
     Active Substance: BOSENTAN
     Indication: PULMONARY ARTERIAL HYPERTENSION
     Dosage: 62.5MG 20MG BID ORAL
     Route: 048
     Dates: start: 201604
  16. REVATIO [Concomitant]
     Active Substance: SILDENAFIL CITRATE
  17. PROTOPIC [Concomitant]
     Active Substance: TACROLIMUS

REACTIONS (1)
  - Liver function test increased [None]

NARRATIVE: CASE EVENT DATE: 20170707
